FAERS Safety Report 14764011 (Version 1)
Quarter: 2018Q2

REPORT INFORMATION
  Report Type: Report from Study
  Country: LT (occurrence: LT)
  Receive Date: 20180416
  Receipt Date: 20180416
  Transmission Date: 20180711
  Serious: Yes (Other)
  Sender: FDA-Public Use
  Company Number: LT-PFIZER INC-2018147720

PATIENT
  Sex: Male
  Weight: 115 kg

DRUGS (2)
  1. CARDURA [Suspect]
     Active Substance: DOXAZOSIN MESYLATE
     Dosage: 4 MG, UNK
     Route: 065
  2. ENTRESTO [Suspect]
     Active Substance: SACUBITRIL\VALSARTAN
     Indication: CARDIAC FAILURE
     Dosage: 1 DF
     Route: 048
     Dates: start: 20171222

REACTIONS (4)
  - Blood pressure systolic increased [Recovered/Resolved]
  - Hypotension [Recovered/Resolved]
  - Sluggishness [Recovered/Resolved]
  - Asthenia [Recovered/Resolved]

NARRATIVE: CASE EVENT DATE: 20180111
